FAERS Safety Report 9356769 (Version 2)
Quarter: 2013Q3

REPORT INFORMATION
  Report Type: Report from Study
  Country: DE (occurrence: DE)
  Receive Date: 20130619
  Receipt Date: 20130705
  Transmission Date: 20140515
  Serious: Yes (Other)
  Sender: FDA-Public Use
  Company Number: DE-UCBSA-088773

PATIENT
  Sex: Male
  Weight: 72 kg

DRUGS (4)
  1. CIMZIA [Suspect]
     Indication: RHEUMATOID ARTHRITIS
     Route: 058
     Dates: start: 20111031, end: 20120130
  2. METHOTREXATE [Concomitant]
     Dosage: 15 MG
     Route: 048
  3. FOLSAN [Concomitant]
     Dosage: 10 MG
  4. SANDOCAL D FORTE [Concomitant]
     Dosage: 1-0-0

REACTIONS (1)
  - Malignant melanoma [Recovered/Resolved]
